FAERS Safety Report 8538102-0 (Version None)
Quarter: 2012Q3

REPORT INFORMATION
  Report Type: 
  Country: None (occurrence: None)
  Receive Date: 20120725
  Receipt Date: 20120719
  Transmission Date: 20120928
  Serious: Yes (Other)
  Sender: FDA-Public Use
  Company Number: US-RB-042565-12

PATIENT
  Age: 34 Year
  Sex: Female

DRUGS (2)
  1. SUBOXONE [Suspect]
     Indication: PRODUCT USED FOR UNKNOWN INDICATION
     Dosage: 12-16 MG DAILY
     Route: 060
  2. SUBOXONE [Suspect]
     Indication: PRODUCT USED FOR UNKNOWN INDICATION
     Dosage: 12-16 MG DAILY
     Route: 060

REACTIONS (5)
  - ARTHRALGIA [None]
  - DIPLOPIA [None]
  - BRAIN OEDEMA [None]
  - FLUID RETENTION [None]
  - OEDEMA PERIPHERAL [None]
